FAERS Safety Report 6922529-4 (Version None)
Quarter: 2010Q3

REPORT INFORMATION
  Report Type: 
  Country: None (occurrence: None)
  Receive Date: 20100813
  Receipt Date: 20100804
  Transmission Date: 20110219
  Serious: Yes (Other)
  Sender: FDA-Public Use
  Company Number: US-JNJFOC-20100802044

PATIENT
  Age: 9 Year
  Sex: Female

DRUGS (4)
  1. REMICADE [Suspect]
     Indication: CROHN'S DISEASE
     Route: 042
  2. ZYRTEC [Concomitant]
     Indication: PREMEDICATION
  3. BENADRYL [Concomitant]
     Indication: PREMEDICATION
  4. HYDROCORTISONE [Concomitant]
     Indication: PREMEDICATION

REACTIONS (3)
  - FACE OEDEMA [None]
  - INFUSION RELATED REACTION [None]
  - VOMITING [None]
